FAERS Safety Report 14164503 (Version 2)
Quarter: 2017Q4

REPORT INFORMATION
  Report Type: Spontaneous
  Country: NO (occurrence: NO)
  Receive Date: 20171107
  Receipt Date: 20171130
  Transmission Date: 20180321
  Serious: Yes (Disabling, Other)
  Sender: FDA-Public Use
  Company Number: NO-PFIZER INC-2017480700

PATIENT
  Age: 66 Year
  Sex: Female

DRUGS (9)
  1. ADALAT [Concomitant]
     Active Substance: NIFEDIPINE
     Indication: HYPERTENSION
     Dosage: 60 MG, 1X/DAY
     Route: 048
  2. FRAGMIN [Concomitant]
     Active Substance: DALTEPARIN SODIUM
     Indication: CEREBRAL INFARCTION
     Dosage: 5000 IU, 2X/DAY
     Route: 058
     Dates: start: 20130821, end: 20131008
  3. PLAVIX [Suspect]
     Active Substance: CLOPIDOGREL BISULFATE
     Indication: CEREBRAL INFARCTION
     Dosage: 75 MG, 1X/DAY
     Route: 048
     Dates: start: 20130826, end: 20150813
  4. PARACET [Concomitant]
     Active Substance: ACETAMINOPHEN
     Dosage: 1 G, 4X/DAY
     Route: 048
  5. LIPITOR [Suspect]
     Active Substance: ATORVASTATIN CALCIUM
     Indication: HYPERCHOLESTEROLAEMIA
     Dosage: 80 MG, 1X/DAY
     Route: 048
     Dates: start: 20130826, end: 20131124
  6. DIOVAN COMP [Concomitant]
     Active Substance: HYDROCHLOROTHIAZIDE\VALSARTAN
     Indication: HYPERTENSION
     Dosage: 12.5/320 MG, 1X/DAY
     Route: 048
  7. LIPITOR [Suspect]
     Active Substance: ATORVASTATIN CALCIUM
     Dosage: 40 MG, 1X/DAY
     Route: 048
     Dates: start: 20131125, end: 20150813
  8. VIVAL [Concomitant]
     Active Substance: DIAZEPAM
     Indication: RESTLESSNESS
     Dosage: 5 MG, AS NEEDED
     Route: 048
  9. IMOVANE [Concomitant]
     Active Substance: ZOPICLONE
     Dosage: 5 MG, 1X/DAY (AT EVENING)
     Route: 048

REACTIONS (8)
  - Eczema [Recovering/Resolving]
  - Pain in extremity [Recovering/Resolving]
  - Myalgia [Recovered/Resolved]
  - Rash pruritic [Recovering/Resolving]
  - Pain [Recovering/Resolving]
  - Psoriasis [Recovering/Resolving]
  - Lyme disease [Recovering/Resolving]
  - Haematoma [Recovering/Resolving]

NARRATIVE: CASE EVENT DATE: 20140301
